FAERS Safety Report 23956972 (Version 4)
Quarter: 2024Q4

REPORT INFORMATION
  Report Type: Spontaneous
  Country: BR (occurrence: BR)
  Receive Date: 20240610
  Receipt Date: 20241014
  Transmission Date: 20250115
  Serious: Yes (Other)
  Sender: PFIZER
  Company Number: BR-PFIZER INC-PV202400074622

PATIENT
  Age: 11 Year
  Sex: Male

DRUGS (1)
  1. SOMATROGON [Suspect]
     Active Substance: SOMATROGON
     Dosage: UNK

REACTIONS (6)
  - Injection site oedema [Unknown]
  - Injection site induration [Unknown]
  - Injection site warmth [Unknown]
  - Injection site inflammation [Unknown]
  - Injection site pain [Unknown]
  - Injection site erythema [Unknown]
